FAERS Safety Report 5740628-X (Version None)
Quarter: 2008Q2

REPORT INFORMATION
  Report Type: 
  Country: None (occurrence: None)
  Receive Date: 20080516
  Receipt Date: 20080508
  Transmission Date: 20081010
  Serious: Yes (Hospitalization)
  Sender: FDA-Public Use
  Company Number: B0516896A

PATIENT
  Age: 64 Year
  Sex: Male

DRUGS (11)
  1. VALTREX [Suspect]
     Indication: HERPES SIMPLEX
     Dosage: 500MG TWICE PER DAY
     Route: 048
  2. ITRACONAZOLE [Concomitant]
     Dosage: 200MG PER DAY
     Route: 065
     Dates: start: 20060301
  3. THYRADIN [Concomitant]
     Dosage: 125MCG PER DAY
     Route: 048
  4. NORVASC [Concomitant]
     Dosage: 5MG PER DAY
     Route: 048
  5. OMEPRAZOLE [Concomitant]
     Dosage: 20MG PER DAY
     Route: 048
  6. MICARDIS [Concomitant]
     Dosage: 80MG PER DAY
     Route: 048
  7. CALTAN [Concomitant]
     Dosage: 1000MG PER DAY
     Route: 048
  8. RENAGEL [Concomitant]
     Dosage: 1000MG PER DAY
     Route: 048
  9. DEPAS [Concomitant]
     Route: 048
  10. HALCION [Concomitant]
     Route: 048
  11. ADALAT [Concomitant]
     Route: 065

REACTIONS (15)
  - BLOOD ALKALINE PHOSPHATASE INCREASED [None]
  - BLOOD CHLORIDE INCREASED [None]
  - BLOOD CREATININE INCREASED [None]
  - BLOOD LACTATE DEHYDROGENASE INCREASED [None]
  - BLOOD PHOSPHORUS INCREASED [None]
  - BLOOD UREA INCREASED [None]
  - CREATININE RENAL CLEARANCE DECREASED [None]
  - DELIRIUM [None]
  - DRUG TOXICITY [None]
  - GAMMA-GLUTAMYLTRANSFERASE DECREASED [None]
  - HAEMATOCRIT DECREASED [None]
  - HAEMOGLOBIN DECREASED [None]
  - MENTAL DISORDER [None]
  - RED BLOOD CELL COUNT DECREASED [None]
  - WHITE BLOOD CELL COUNT INCREASED [None]
